FAERS Safety Report 8619133-9 (Version None)
Quarter: 2012Q3

REPORT INFORMATION
  Report Type: 
  Country: None (occurrence: None)
  Receive Date: 20120824
  Receipt Date: 20120822
  Transmission Date: 20120928
  Serious: Yes (Hospitalization, Other)
  Sender: FDA-Public Use
  Company Number: PHHY2011DE20632

PATIENT
  Sex: Female
  Weight: 87 kg

DRUGS (10)
  1. OMEPRAZOLE [Concomitant]
     Dosage: 20 MG, BID
     Dates: start: 20110222
  2. KLIOGEST ^NOVO INDUSTRI^ [Concomitant]
  3. EXJADE [Suspect]
     Indication: MYELODYSPLASTIC SYNDROME
     Dosage: 1500 MG, QD
     Route: 048
     Dates: start: 20110202, end: 20110420
  4. RAMIPRIL [Concomitant]
     Dosage: 2.5 MG, 1/2 DAILY
  5. RAMIPRIL [Concomitant]
     Dosage: UNK UKN, UNK
     Dates: start: 20110920
  6. PULMICORT [Concomitant]
     Dates: start: 20050413
  7. VALPROATE SODIUM [Concomitant]
     Dosage: 1000 MG, UNK
     Dates: start: 20110921, end: 20111011
  8. VALPROATE SODIUM [Concomitant]
     Dosage: 1300 MG, UNK
     Dates: start: 20111012, end: 20120313
  9. PANTOPRAZOLE [Concomitant]
     Dosage: 40 MG, QD
     Route: 048
     Dates: start: 20110222
  10. FLUTICASONE PROPIONATE/SALMETEROL [Concomitant]

REACTIONS (14)
  - DIARRHOEA [None]
  - HALLUCINATION [None]
  - VOMITING [None]
  - BRONCHOPNEUMONIA [None]
  - PLEURISY [None]
  - PAIN [None]
  - CONFUSIONAL STATE [None]
  - CRYING [None]
  - BLOOD CREATININE INCREASED [None]
  - HAEMOGLOBIN DECREASED [None]
  - PYREXIA [None]
  - ABDOMINAL PAIN LOWER [None]
  - GASTROENTERITIS [None]
  - NAUSEA [None]
